FAERS Safety Report 16117863 (Version 1)
Quarter: 2019Q1

REPORT INFORMATION
  Report Type: Spontaneous
  Country: DE (occurrence: DE)
  Receive Date: 20190326
  Receipt Date: 20190326
  Transmission Date: 20190418
  Serious: Yes (Death, Other)
  Sender: FDA-Public Use
  Company Number: DE-BRISTOL-MYERS SQUIBB COMPANY-BMS-2019-029607

PATIENT
  Age: 64 Year
  Sex: Male

DRUGS (3)
  1. IPILIMUMAB [Suspect]
     Active Substance: IPILIMUMAB
     Indication: NODULAR MELANOMA
     Route: 065
  2. DEXAMETHASONE. [Concomitant]
     Active Substance: DEXAMETHASONE
     Indication: PRODUCT USED FOR UNKNOWN INDICATION
     Route: 005
  3. NIVOLUMAB [Suspect]
     Active Substance: NIVOLUMAB
     Indication: NODULAR MELANOMA
     Dosage: UNAVAILABLE
     Route: 065

REACTIONS (6)
  - Malignant neoplasm progression [Fatal]
  - Cerebral haemorrhage [Unknown]
  - Brain oedema [Unknown]
  - Hemiparesis [Unknown]
  - Dysarthria [Unknown]
  - Ataxia [Unknown]
